FAERS Safety Report 21302759 (Version 1)
Quarter: 2022Q3

REPORT INFORMATION
  Report Type: Spontaneous
  Country: CN (occurrence: CN)
  Receive Date: 20220907
  Receipt Date: 20220907
  Transmission Date: 20221027
  Serious: Yes (Other)
  Sender: FDA-Public Use
  Company Number: CN-PFIZER INC-PV202200058714

PATIENT
  Age: 49 Year
  Sex: Female
  Weight: 60 kg

DRUGS (1)
  1. CYTARABINE [Suspect]
     Active Substance: CYTARABINE
     Indication: Chemotherapy
     Dosage: 75 MG, 1X/DAY
     Route: 041
     Dates: start: 20220826, end: 20220901

REACTIONS (2)
  - Conjunctival hyperaemia [Recovered/Resolved]
  - Pruritus [Recovered/Resolved]

NARRATIVE: CASE EVENT DATE: 20220901
